FAERS Safety Report 24594956 (Version 2)
Quarter: 2024Q4

REPORT INFORMATION
  Report Type: Report from Study
  Country: US (occurrence: US)
  Receive Date: 20241108
  Receipt Date: 20241115
  Transmission Date: 20250115
  Serious: Yes (Hospitalization)
  Sender: REGENERON
  Company Number: US-REGENERON PHARMACEUTICALS, INC.-2024-146807

PATIENT
  Sex: Female

DRUGS (2)
  1. EYLEA HD [Suspect]
     Active Substance: AFLIBERCEPT
     Indication: Neovascular age-related macular degeneration
     Dosage: 0.07 ML, EVERY 4 WEEKS (FORMULATION: HD SINGLE DOSE VIAL (SDV), STRENGTH: 8MG/0.07ML)
     Dates: start: 202408
  2. EYLEA HD [Suspect]
     Active Substance: AFLIBERCEPT
     Indication: Choroidal neovascularisation
     Dosage: 0.07 ML, EVERY 4 WEEKS (FORMULATION: HD SINGLE DOSE VIAL (SDV), STRENGTH: 8MG/0.07ML)

REACTIONS (1)
  - Hospitalisation [Not Recovered/Not Resolved]

NARRATIVE: CASE EVENT DATE: 20240101
